FAERS Safety Report 9734666 (Version 1)
Quarter: 2013Q4

REPORT INFORMATION
  Report Type: Report from Study
  Country: US (occurrence: US)
  Receive Date: 20131206
  Receipt Date: 20131206
  Transmission Date: 20140711
  Serious: Yes (Hospitalization)
  Sender: FDA-Public Use
  Company Number: US-ROCHE-1308860

PATIENT
  Age: 80 Year
  Sex: Female

DRUGS (2)
  1. AVASTIN [Suspect]
     Indication: MACULAR DEGENERATION
     Route: 050
  2. LUCENTIS [Suspect]
     Indication: MACULAR DEGENERATION
     Route: 050

REACTIONS (5)
  - Peripheral nerve operation [Recovered/Resolved]
  - Coronary arterial stent insertion [Recovered/Resolved]
  - Phlebosclerosis [Recovered/Resolved]
  - Visual impairment [Unknown]
  - Cardiac disorder [Unknown]
